FAERS Safety Report 4611977-3 (Version None)
Quarter: 2005Q2

REPORT INFORMATION
  Report Type: 
  Country: None (occurrence: None)
  Receive Date: 20050308
  Receipt Date: 20050110
  Transmission Date: 20051028
  Serious: Yes (Other)
  Sender: FDA-Public Use
  Company Number: 2005UW00426

PATIENT
  Age: 66 Year
  Sex: Female
  Weight: 59.874 kg

DRUGS (1)
  1. CRESTOR [Suspect]
     Indication: BLOOD CHOLESTEROL INCREASED
     Dosage: 10 MG QD PO
     Route: 048
     Dates: start: 20041001

REACTIONS (3)
  - ASTHENIA [None]
  - DYSPEPSIA [None]
  - SENSATION OF HEAVINESS [None]
